FAERS Safety Report 17845747 (Version 1)
Quarter: 2020Q2

REPORT INFORMATION
  Report Type: Spontaneous
  Country: DE (occurrence: DE)
  Receive Date: 20200601
  Receipt Date: 20200601
  Transmission Date: 20200714
  Serious: Yes (Hospitalization, Other)
  Sender: FDA-Public Use
  Company Number: DE-MACLEODS PHARMACEUTICALS US LTD-MAC2020026626

PATIENT

DRUGS (5)
  1. ARIPIPRAZOLE  5 MG [Suspect]
     Active Substance: ARIPIPRAZOLE
     Indication: SCHIZOPHRENIA
     Dosage: 5 MILLIGRAM, QD
     Route: 048
  2. RISPERIDONE. [Suspect]
     Active Substance: RISPERIDONE
     Dosage: 37.5 MILLIGRAM, PER TWO WEEKS
     Route: 030
  3. OLANZAPINE. [Suspect]
     Active Substance: OLANZAPINE
     Indication: SCHIZOPHRENIA
     Dosage: 405 MILLIGRAM, PER 4 WEEK, DEPOT
     Route: 030
  4. OLANZAPINE. [Suspect]
     Active Substance: OLANZAPINE
     Dosage: 15 MILLIGRAM, QD
     Route: 048
  5. RISPERIDONE. [Suspect]
     Active Substance: RISPERIDONE
     Indication: SCHIZOPHRENIA
     Dosage: 5 MILLIGRAM, QD
     Route: 048

REACTIONS (2)
  - Compulsive sexual behaviour [Recovered/Resolved]
  - Paraphilia [Recovered/Resolved]
